FAERS Safety Report 10985151 (Version 2)
Quarter: 2015Q2

REPORT INFORMATION
  Report Type: Spontaneous
  Country: AU (occurrence: AU)
  Receive Date: 20150404
  Receipt Date: 20150420
  Transmission Date: 20150821
  Serious: Yes (Hospitalization, Other)
  Sender: FDA-Public Use
  Company Number: AU-ACCORD-029866

PATIENT
  Age: 32 Year
  Sex: Male

DRUGS (1)
  1. FLUOROURACIL. [Suspect]
     Active Substance: FLUOROURACIL
     Indication: COLORECTAL ADENOCARCINOMA
     Dosage: CONTINUOUS INFUSION.?ADJUVANT TREATMENT. FIRST CYCLE.

REACTIONS (2)
  - Cardiac failure acute [Recovering/Resolving]
  - Cardiogenic shock [Recovering/Resolving]
